FAERS Safety Report 8126191-7 (Version None)
Quarter: 2012Q1

REPORT INFORMATION
  Report Type: 
  Country: None (occurrence: None)
  Receive Date: 20120209
  Receipt Date: 20120206
  Transmission Date: 20120608
  Serious: Yes (Death)
  Sender: FDA-Public Use
  Company Number: PHHY2012JP010470

PATIENT

DRUGS (2)
  1. NEORAL [Suspect]
     Indication: LIVER TRANSPLANT
     Dosage: 5 CC TWICE DAILY
     Route: 048
  2. NEORAL [Suspect]
     Dosage: 0.5 CC TWICE DAILY
     Route: 048

REACTIONS (2)
  - ACCIDENTAL OVERDOSE [None]
  - IMMUNOSUPPRESSANT DRUG LEVEL INCREASED [None]
